FAERS Safety Report 5639953-2 (Version None)
Quarter: 2008Q1

REPORT INFORMATION
  Report Type: 
  Country: None (occurrence: None)
  Receive Date: 20080225
  Receipt Date: 20080225
  Transmission Date: 20080703
  Serious: Yes (Death)
  Sender: FDA-Public Use
  Company Number: None

PATIENT

DRUGS (2)
  1. LEXAPRO [Suspect]
     Indication: BIPOLAR DISORDER
     Dosage: 20 MG  ONCE DAILY PO
     Route: 048
     Dates: start: 20080107, end: 20080129
  2. CLONAZEPAM [Suspect]
     Indication: BIPOLAR DISORDER
     Dosage: 0.5 MG THREE TIMES DAILY PO
     Route: 048
     Dates: start: 20080107, end: 20080129

REACTIONS (1)
  - COMPLETED SUICIDE [None]
